FAERS Safety Report 6196122-8 (Version None)
Quarter: 2009Q2

REPORT INFORMATION
  Report Type: 
  Country: None (occurrence: None)
  Receive Date: 20090520
  Receipt Date: 20090511
  Transmission Date: 20091009
  Serious: Yes (Other)
  Sender: FDA-Public Use
  Company Number: GB-PFIZER INC-2009210611

PATIENT
  Age: 65 Year

DRUGS (7)
  1. AMLODIPINE BESYLATE [Suspect]
     Indication: BLOOD PRESSURE
     Dosage: 5 MG, 1X/DAY
     Route: 048
  2. OMEPRAZOLE [Suspect]
     Indication: HIATUS HERNIA
     Dosage: 20 MG, 1X/DAY
     Route: 048
  3. SERETIDE [Suspect]
     Indication: ASTHMA
     Dosage: 250 UG, 2X/DAY
     Route: 055
     Dates: start: 20040101
  4. SINGULAIR [Suspect]
     Indication: ASTHMA
     Dosage: 10 MG, 1X/DAY
     Route: 048
  5. VENTOLIN [Suspect]
     Indication: ASTHMA
     Dosage: 100 UG, AS NEEDED
     Route: 055
  6. DIHYDROCODEINE [Concomitant]
     Dosage: 300 MG, AS NEEDED
  7. TRIAMCINOLONE [Concomitant]

REACTIONS (4)
  - ASTHMA [None]
  - COUGH [None]
  - DYSPNOEA [None]
  - INCREASED UPPER AIRWAY SECRETION [None]
